FAERS Safety Report 16288649 (Version 2)
Quarter: 2019Q2

REPORT INFORMATION
  Report Type: Report from Study
  Country: US (occurrence: US)
  Receive Date: 20190509
  Receipt Date: 20190522
  Transmission Date: 20190711
  Serious: Yes (Hospitalization)
  Sender: FDA-Public Use
  Company Number: US-PFIZER INC-2019193021

PATIENT
  Age: 55 Year
  Sex: Male

DRUGS (4)
  1. DILANTIN [Suspect]
     Active Substance: PHENYTOIN
     Dosage: 100 MG, UNK
     Dates: end: 201901
  2. NUEDEXTA [Suspect]
     Active Substance: DEXTROMETHORPHAN HYDROBROMIDE\QUINIDINE SULFATE
     Dosage: 1 DF, 1X/DAY
     Route: 048
     Dates: start: 20190227
  3. NUEDEXTA [Suspect]
     Active Substance: DEXTROMETHORPHAN HYDROBROMIDE\QUINIDINE SULFATE
     Indication: AFFECTIVE DISORDER
     Dosage: 1 DF, 2X/DAY
     Route: 048
     Dates: start: 201606, end: 201901
  4. NUEDEXTA [Suspect]
     Active Substance: DEXTROMETHORPHAN HYDROBROMIDE\QUINIDINE SULFATE
     Indication: AFFECT LABILITY
     Dosage: 1 DF, 2X/DAY
     Route: 048
     Dates: end: 20190227

REACTIONS (8)
  - Hallucination, visual [Recovered/Resolved]
  - Disorientation [Unknown]
  - Off label use [Unknown]
  - Fall [Unknown]
  - Product use issue [Unknown]
  - Anticonvulsant drug level increased [Recovered/Resolved]
  - Injury [Unknown]
  - Infection [Unknown]
